FAERS Safety Report 4530443-7 (Version None)
Quarter: 2004Q4

REPORT INFORMATION
  Report Type: 
  Country: None (occurrence: None)
  Receive Date: 20041206
  Receipt Date: 20040917
  Transmission Date: 20050328
  Serious: No
  Sender: FDA-Public Use
  Company Number: US_0409106136

PATIENT
  Sex: Female

DRUGS (2)
  1. CYMBALTA [Suspect]
     Indication: MAJOR DEPRESSION
  2. LEXAPRO [Concomitant]

REACTIONS (2)
  - GENITAL BURNING SENSATION [None]
  - SEXUAL DYSFUNCTION [None]
